FAERS Safety Report 12068808 (Version 1)
Quarter: 2016Q1

REPORT INFORMATION
  Report Type: Spontaneous
  Country: US (occurrence: US)
  Receive Date: 20160211
  Receipt Date: 20160211
  Transmission Date: 20160526
  Serious: Yes (Other)
  Sender: FDA-Public Use
  Company Number: PHHY2016US015027

PATIENT

DRUGS (1)
  1. ENOXAPARIN [Suspect]
     Active Substance: ENOXAPARIN
     Indication: ABNORMAL CLOTTING FACTOR
     Route: 065

REACTIONS (2)
  - Pharyngeal haematoma [Recovered/Resolved]
  - Coagulation factor deficiency [Recovered/Resolved]
